FAERS Safety Report 10724579 (Version 1)
Quarter: 2015Q1

REPORT INFORMATION
  Report Type: Spontaneous
  Country: US (occurrence: None)
  Receive Date: 20150116
  Receipt Date: 20150116
  Transmission Date: 20150721
  Serious: Yes (Hospitalization)
  Sender: FDA-Public Use
  Company Number: None

PATIENT
  Age: 71 Year
  Sex: Male
  Weight: 103 kg

DRUGS (1)
  1. CYTARABINE. [Suspect]
     Active Substance: CYTARABINE
     Dates: end: 20150108

REACTIONS (5)
  - Pneumonia klebsiella [None]
  - Pancytopenia [None]
  - Pyrexia [None]
  - Stomatitis [None]
  - Malaise [None]

NARRATIVE: CASE EVENT DATE: 20150114
